FAERS Safety Report 16038564 (Version 1)
Quarter: 2019Q1

REPORT INFORMATION
  Report Type: Spontaneous
  Country: US (occurrence: US)
  Receive Date: 20190305
  Receipt Date: 20190305
  Transmission Date: 20190418
  Serious: Yes (Other)
  Sender: FDA-Public Use
  Company Number: US-ALEXION PHARMACEUTICALS INC.-A201903224

PATIENT
  Sex: Male

DRUGS (1)
  1. SOLIRIS [Suspect]
     Active Substance: ECULIZUMAB
     Indication: MYASTHENIA GRAVIS
     Dosage: 900 MG, WEEKLY
     Route: 042
     Dates: start: 20190201

REACTIONS (4)
  - Muscular weakness [Unknown]
  - Abdominal pain [Unknown]
  - Hypothermia [Unknown]
  - Dysarthria [Unknown]

NARRATIVE: CASE EVENT DATE: 20190225
